FAERS Safety Report 13257841 (Version 3)
Quarter: 2017Q2

REPORT INFORMATION
  Report Type: Spontaneous
  Country: US (occurrence: US)
  Receive Date: 20170221
  Receipt Date: 20170404
  Transmission Date: 20170830
  Serious: Yes (Other)
  Sender: FDA-Public Use
  Company Number: US-VIIV HEALTHCARE LIMITED-US2017024664

PATIENT
  Age: 48 Year
  Sex: Male
  Weight: 80.73 kg

DRUGS (1)
  1. TIVICAY [Suspect]
     Active Substance: DOLUTEGRAVIR SODIUM
     Indication: HIV INFECTION
     Dosage: 50 MG, QD
     Route: 048
     Dates: start: 201506

REACTIONS (23)
  - Dyspnoea [Unknown]
  - Headache [Unknown]
  - Discomfort [Unknown]
  - Hepatic enzyme increased [Unknown]
  - Nausea [Unknown]
  - Dizziness [Unknown]
  - Melaena [Unknown]
  - Vision blurred [Unknown]
  - Arthralgia [Unknown]
  - Chills [Unknown]
  - Fatigue [Unknown]
  - Abnormal dreams [Unknown]
  - Enzyme abnormality [Unknown]
  - Insomnia [Unknown]
  - Asthenia [Unknown]
  - Gastroenteritis viral [Unknown]
  - Back pain [Unknown]
  - Drug ineffective [Unknown]
  - Faeces discoloured [Unknown]
  - Cough [Unknown]
  - Decreased appetite [Unknown]
  - Myalgia [Unknown]
  - Adverse drug reaction [Unknown]

NARRATIVE: CASE EVENT DATE: 201608
